FAERS Safety Report 9132651 (Version 2)
Quarter: 2013Q2

REPORT INFORMATION
  Report Type: Spontaneous
  Country: IT (occurrence: IT)
  Receive Date: 20130301
  Receipt Date: 20130412
  Transmission Date: 20140414
  Serious: Yes (Hospitalization)
  Sender: FDA-Public Use
  Company Number: IT-MERCK-1302ITA011993

PATIENT
  Age: 69 Year
  Sex: Male

DRUGS (4)
  1. SINEMET 100MG + 25MG COMPRESSE [Suspect]
     Indication: PARKINSON^S DISEASE
     Dosage: 4 DF, QD
     Route: 048
     Dates: start: 20120103
  2. PRAMIPEXOLE [Suspect]
     Indication: PARKINSON^S DISEASE
     Dosage: 0.7 MG, QD
     Route: 048
     Dates: start: 20120103
  3. CLOZAPINE [Suspect]
     Indication: PARKINSON^S DISEASE
     Dosage: 100 MG, QD
     Route: 048
     Dates: start: 20120103
  4. CORDARONE [Concomitant]
     Route: 048

REACTIONS (1)
  - Sopor [Recovering/Resolving]
